FAERS Safety Report 8680881 (Version 5)
Quarter: 2013Q2

REPORT INFORMATION
  Report Type: Report from Study
  Country: FR (occurrence: FR)
  Receive Date: 20120724
  Receipt Date: 20130426
  Transmission Date: 20140414
  Serious: Yes (Hospitalization, Other)
  Sender: FDA-Public Use
  Company Number: FR-ROCHE-1087279

PATIENT
  Age: 71 Year
  Sex: Male
  Weight: 92 kg

DRUGS (16)
  1. TOCILIZUMAB [Suspect]
     Indication: RHEUMATOID ARTHRITIS
     Route: 042
     Dates: start: 20120130
  2. TOCILIZUMAB [Suspect]
     Dosage: DOSE WAS REDUCED
     Route: 065
  3. TOCILIZUMAB [Suspect]
     Dosage: 3RD INFUSION
     Route: 065
     Dates: start: 20120327
  4. TOCILIZUMAB [Suspect]
     Route: 065
     Dates: start: 20120424
  5. TOCILIZUMAB [Suspect]
     Dosage: 5TH INFUSION
     Route: 065
     Dates: start: 20120522
  6. TOCILIZUMAB [Suspect]
     Route: 065
     Dates: start: 20120228
  7. TOCILIZUMAB [Suspect]
     Route: 065
     Dates: start: 20120619
  8. TOCILIZUMAB [Suspect]
     Route: 065
     Dates: start: 20120717
  9. LAMALINE [Concomitant]
     Indication: RHEUMATOID ARTHRITIS
     Route: 048
     Dates: start: 20111206
  10. OLMETEC [Concomitant]
     Indication: HYPERTENSION
     Route: 048
     Dates: start: 20110706
  11. TAHOR [Concomitant]
     Indication: HYPERLIPIDAEMIA
     Route: 048
     Dates: start: 20110706
  12. CELECTOL [Concomitant]
     Indication: HYPERTENSION
     Route: 048
     Dates: start: 20110706
  13. OMEPRAZOLE [Concomitant]
     Indication: PROPHYLAXIS AGAINST GASTROINTESTINAL ULCER
     Route: 048
     Dates: start: 20111207
  14. DUOPLAVIN [Concomitant]
     Indication: ISCHAEMIA
     Route: 048
     Dates: start: 20110706
  15. CORTANCYL [Concomitant]
     Route: 065
     Dates: start: 20120228
  16. SALAZOPYRINE [Concomitant]

REACTIONS (3)
  - Purpura [Not Recovered/Not Resolved]
  - Petechiae [Not Recovered/Not Resolved]
  - Leukocytoclastic vasculitis [Recovered/Resolved]
